FAERS Safety Report 25977459 (Version 1)
Quarter: 2025Q4

REPORT INFORMATION
  Report Type: Spontaneous
  Country: GB (occurrence: GB)
  Receive Date: 20251030
  Receipt Date: 20251030
  Transmission Date: 20260117
  Serious: Yes (Disabling)
  Sender: AZURITY PHARMACEUTICALS
  Company Number: None

PATIENT
  Age: 45 Year
  Sex: Female
  Weight: 105 kg

DRUGS (1)
  1. TRIPTORELIN [Suspect]
     Active Substance: TRIPTORELIN
     Indication: Uterine leiomyoma
     Dosage: UNK
     Route: 065
     Dates: start: 20251022

REACTIONS (1)
  - Adnexa uteri pain [Not Recovered/Not Resolved]

NARRATIVE: CASE EVENT DATE: 20251024
